FAERS Safety Report 6387974-7 (Version None)
Quarter: 2009Q4

REPORT INFORMATION
  Report Type: 
  Country: None (occurrence: None)
  Receive Date: 20091005
  Receipt Date: 20091001
  Transmission Date: 20100525
  Serious: Yes (Death)
  Sender: FDA-Public Use
  Company Number: JP-BAYER-200910366BYL

PATIENT
  Age: 73 Year
  Sex: Male

DRUGS (23)
  1. FLUDARA [Suspect]
     Indication: NON-HODGKIN'S LYMPHOMA UNSPECIFIED HISTOLOGY INDOLENT STAGE IV
     Dosage: AS USED: 50 MG  UNIT DOSE: 10 MG
     Route: 048
     Dates: start: 20080410, end: 20080411
  2. PREDNISOLONE [Concomitant]
     Indication: NON-HODGKIN'S LYMPHOMA UNSPECIFIED HISTOLOGY INDOLENT STAGE IV
     Dosage: AS USED: 50 MG
     Route: 048
     Dates: start: 20080412, end: 20080420
  3. PREDNISOLONE [Concomitant]
     Dosage: AS USED: 20-7.5 MG
     Route: 048
     Dates: start: 20050301, end: 20080411
  4. BARACLUDE [Concomitant]
     Indication: HEPATITIS B
     Dosage: AS USED: 0.5 MG
     Route: 048
     Dates: start: 20080327, end: 20080429
  5. PARIET [Concomitant]
     Indication: REFLUX OESOPHAGITIS
     Dosage: AS USED: 10 MG
     Route: 048
     Dates: start: 20080326, end: 20080412
  6. MAGMITT [Concomitant]
     Indication: CONSTIPATION
     Dosage: AS USED: 1500 MG
     Route: 048
     Dates: start: 20080327, end: 20080412
  7. WARFARIN [Concomitant]
     Indication: DEEP VEIN THROMBOSIS
     Dosage: AS USED: 0.5 MG
     Route: 048
     Dates: start: 20080404, end: 20080412
  8. PURSENNID [Concomitant]
     Indication: CONSTIPATION
     Route: 048
     Dates: start: 20080327, end: 20080412
  9. NASEA [Concomitant]
     Indication: NAUSEA
     Route: 048
     Dates: start: 20080411, end: 20080411
  10. SOLDEM 3A [Concomitant]
     Indication: DEHYDRATION
     Dosage: AS USED: 500 ML
     Route: 042
     Dates: start: 20080411, end: 20080413
  11. AMIGRAND [Concomitant]
     Indication: DEHYDRATION
     Dosage: AS USED: 500 ML
     Route: 042
     Dates: start: 20080412, end: 20080415
  12. OMEPRAL [Concomitant]
     Indication: GASTRITIS
     Dosage: AS USED: 40 MG
     Route: 042
     Dates: start: 20080412, end: 20080420
  13. SOLACET D [Concomitant]
     Indication: DEHYDRATION
     Dosage: AS USED: 500 ML
     Route: 042
     Dates: start: 20080413, end: 20080415
  14. KN 1A [Concomitant]
     Indication: DEHYDRATION
     Dosage: AS USED: 500 ML
     Route: 042
     Dates: start: 20080414, end: 20080417
  15. KAYTWO N [Concomitant]
     Dosage: AS USED: 10 MG
     Route: 042
     Dates: start: 20080414, end: 20080415
  16. NEOPAREN-1 [Concomitant]
     Indication: MALNUTRITION
     Dosage: AS USED: 1000 ML
     Route: 042
     Dates: start: 20080416, end: 20080417
  17. NEOPAREN-2 [Concomitant]
     Indication: MALNUTRITION
     Dosage: AS USED: 1000 ML
     Route: 042
     Dates: start: 20080418
  18. INTRAFAT [Concomitant]
     Indication: MALNUTRITION
     Dosage: AS USED: 100 ML
     Route: 042
     Dates: start: 20080418, end: 20080418
  19. DOXORUBICIN HCL [Concomitant]
     Indication: NON-HODGKIN'S LYMPHOMA UNSPECIFIED HISTOLOGY INDOLENT STAGE IV
  20. DEXAMETHASONE 0.5MG TAB [Concomitant]
     Indication: NON-HODGKIN'S LYMPHOMA UNSPECIFIED HISTOLOGY INDOLENT STAGE IV
  21. MELPHALAN [Concomitant]
     Indication: NON-HODGKIN'S LYMPHOMA UNSPECIFIED HISTOLOGY INDOLENT STAGE IV
  22. RED BLOOD CELLS [Concomitant]
     Indication: PACKED RED BLOOD CELL TRANSFUSION
     Dosage: 2 UNITS
     Route: 042
     Dates: start: 20080430, end: 20080430
  23. PLATELETS [Concomitant]
     Indication: PLATELET TRANSFUSION
     Dosage: 10 UNITS
     Route: 042
     Dates: start: 20080429, end: 20080430

REACTIONS (8)
  - ANAEMIA [None]
  - C-REACTIVE PROTEIN INCREASED [None]
  - HAEMATOCRIT DECREASED [None]
  - HEPATIC ENZYME ABNORMAL [None]
  - HYPONATRAEMIA [None]
  - NAUSEA [None]
  - NON-HODGKIN'S LYMPHOMA [None]
  - PLATELET COUNT DECREASED [None]
